FAERS Safety Report 4991724-6 (Version None)
Quarter: 2006Q2

REPORT INFORMATION
  Report Type: 
  Country: None (occurrence: None)
  Receive Date: 20060504
  Receipt Date: 20060426
  Transmission Date: 20061013
  Serious: Yes (Hospitalization)
  Sender: FDA-Public Use
  Company Number: 2006 - 0068

PATIENT
  Age: 63 Year
  Sex: Male

DRUGS (9)
  1. AUGMENTIN '125' [Suspect]
     Dosage: 2G FOUR TIMES PER DAY
     Route: 042
     Dates: start: 20060302, end: 20060305
  2. RANIPLEX [Suspect]
     Dosage: 1UNIT PER DAY
     Route: 048
     Dates: end: 20060323
  3. NEXIUM [Suspect]
     Dosage: 1UNIT PER DAY
     Route: 048
     Dates: start: 20060303, end: 20060318
  4. SKENAN [Concomitant]
     Route: 065
  5. ZOCOR [Concomitant]
     Indication: HYPERTRIGLYCERIDAEMIA
     Route: 065
     Dates: start: 19950101
  6. SUCRALFATE [Concomitant]
     Route: 065
  7. EFFERALGAN CODEINE [Concomitant]
     Route: 065
  8. ISOPTIN [Concomitant]
     Indication: HYPERTENSION
     Route: 065
  9. SOLUPRED [Concomitant]

REACTIONS (6)
  - ALANINE AMINOTRANSFERASE INCREASED [None]
  - ASPARTATE AMINOTRANSFERASE INCREASED [None]
  - BLOOD ALKALINE PHOSPHATASE INCREASED [None]
  - BLOOD BILIRUBIN INCREASED [None]
  - HEPATITIS CHOLESTATIC [None]
  - JAUNDICE [None]
